FAERS Safety Report 7571636-4 (Version None)
Quarter: 2011Q2

REPORT INFORMATION
  Report Type: 
  Country: None (occurrence: None)
  Receive Date: 20110624
  Receipt Date: 20110613
  Transmission Date: 20111010
  Serious: Yes (Hospitalization)
  Sender: FDA-Public Use
  Company Number: US-MERCK-1106USA02075

PATIENT
  Age: 76 Year
  Sex: Male

DRUGS (1)
  1. PRINIVIL [Suspect]
     Route: 048
     Dates: end: 20110301

REACTIONS (3)
  - RENAL FAILURE ACUTE [None]
  - COUGH [None]
  - HYPOXIA [None]
